FAERS Safety Report 20338965 (Version 2)
Quarter: 2022Q1

REPORT INFORMATION
  Report Type: Report from Study
  Country: BR (occurrence: BR)
  Receive Date: 20220116
  Receipt Date: 20220118
  Transmission Date: 20220423
  Serious: Yes (Other)
  Sender: FDA-Public Use
  Company Number: BR-ABBVIE-22K-020-4232438-00

PATIENT
  Age: 60 Year
  Sex: Male
  Weight: 96 kg

DRUGS (5)
  1. RINVOQ [Suspect]
     Active Substance: UPADACITINIB
     Indication: Rheumatoid arthritis
     Route: 048
     Dates: end: 202112
  2. RINVOQ [Suspect]
     Active Substance: UPADACITINIB
     Route: 048
     Dates: start: 202201
  3. CORTISONE [Suspect]
     Active Substance: CORTISONE
     Indication: Product used for unknown indication
     Route: 065
  4. METFORMIN [Concomitant]
     Active Substance: METFORMIN HYDROCHLORIDE
     Indication: Diabetes mellitus
  5. LANTUS [Concomitant]
     Active Substance: INSULIN GLARGINE
     Indication: Diabetes mellitus

REACTIONS (7)
  - Diabetes mellitus [Recovering/Resolving]
  - Influenza [Recovered/Resolved]
  - Oropharyngeal pain [Unknown]
  - Pain [Unknown]
  - Cold sweat [Unknown]
  - Cough [Unknown]
  - Illness [Unknown]

NARRATIVE: CASE EVENT DATE: 20211201
